FAERS Safety Report 21830695 (Version 1)
Quarter: 2023Q1

REPORT INFORMATION
  Report Type: Spontaneous
  Country: US (occurrence: US)
  Receive Date: 20230106
  Receipt Date: 20230106
  Transmission Date: 20230417
  Serious: No
  Sender: FDA-Public Use
  Company Number: US-TRIS PHARMA, INC.-22US010635

PATIENT

DRUGS (2)
  1. DEXTROMETHORPHAN HYDROBROMIDE [Suspect]
     Active Substance: DEXTROMETHORPHAN HYDROBROMIDE
     Indication: Cough
     Dosage: 10 MILLILITRE (60 MG), SINGLE
     Route: 048
     Dates: start: 20221216, end: 20221216
  2. DEXTROMETHORPHAN HYDROBROMIDE [Suspect]
     Active Substance: DEXTROMETHORPHAN HYDROBROMIDE
     Dosage: 20 MILLILITRE (120 MG), SINGLE
     Route: 048
     Dates: start: 20221216, end: 20221216

REACTIONS (7)
  - Heart rate increased [Unknown]
  - Nausea [Recovered/Resolved]
  - Feeling abnormal [Recovered/Resolved]
  - Dizziness [Recovered/Resolved]
  - Euphoric mood [Unknown]
  - Incorrect dose administered [Unknown]
  - Inappropriate schedule of product administration [Unknown]

NARRATIVE: CASE EVENT DATE: 20221216
